FAERS Safety Report 5728627-5 (Version None)
Quarter: 2008Q2

REPORT INFORMATION
  Report Type: 
  Country: None (occurrence: None)
  Receive Date: 20080506
  Receipt Date: 20080425
  Transmission Date: 20081010
  Serious: Yes (Hospitalization)
  Sender: FDA-Public Use
  Company Number: US-JNJFOC-20080204676

PATIENT
  Sex: Male
  Weight: 104.33 kg

DRUGS (2)
  1. REMICADE [Suspect]
     Dosage: 4 INFUSIONS, DATES UNSPECIFIED
     Route: 042
  2. REMICADE [Suspect]
     Indication: CROHN'S DISEASE
     Dosage: 3 INFUSIONS ON UNSPECIFIED DATES
     Route: 042

REACTIONS (3)
  - INFUSION RELATED REACTION [None]
  - OXYGEN SATURATION DECREASED [None]
  - THROAT TIGHTNESS [None]
